FAERS Safety Report 20068199 (Version 1)
Quarter: 2021Q4

REPORT INFORMATION
  Report Type: Spontaneous
  Country: US (occurrence: US)
  Receive Date: 20211115
  Receipt Date: 20211115
  Transmission Date: 20220303
  Serious: Yes (Hospitalization, Other)
  Sender: FDA-Public Use
  Company Number: US-drreddys-SPO/USA/21/0143716

PATIENT
  Age: 55 Year
  Sex: Male

DRUGS (3)
  1. TACROLIMUS [Suspect]
     Active Substance: TACROLIMUS
     Indication: Immunosuppressant drug therapy
     Dates: start: 2019, end: 2019
  2. MYCOPHENOLATE MOFETIL [Suspect]
     Active Substance: MYCOPHENOLATE MOFETIL
     Indication: Immunosuppressant drug therapy
     Dates: start: 2019, end: 2019
  3. THYMOGLOBULIN [Suspect]
     Active Substance: LAPINE T-LYMPHOCYTE IMMUNE GLOBULIN
     Indication: Immunosuppressant drug therapy
     Dosage: INDUCTION IMMUNOSUPPRESSION
     Dates: start: 2019

REACTIONS (2)
  - Polyomavirus-associated nephropathy [Recovering/Resolving]
  - Polyomavirus viraemia [Recovering/Resolving]

NARRATIVE: CASE EVENT DATE: 20190101
